FAERS Safety Report 8903897 (Version 1)
Quarter: 2012Q4

REPORT INFORMATION
  Report Type: 
  Country: US (occurrence: US)
  Receive Date: 20121113
  Receipt Date: 20121113
  Transmission Date: 20130627
  Serious: No
  Sender: FDA-Public Use
  Company Number: US-ASTRAZENECA-2012SE82820

PATIENT
  Age: 57 Year
  Sex: Female

DRUGS (12)
  1. SYMBICORT PMDI [Suspect]
     Dosage: TWO TIMES A DAY
     Route: 055
  2. NEXIUM [Suspect]
     Route: 048
  3. DUO-NEB [Concomitant]
     Dosage: NEBULIZE 4 X DAY OR PRN
  4. PULMACORT [Concomitant]
     Dosage: NEBULIZE 2 X DAY
     Route: 055
  5. ESTRATEST HS [Concomitant]
     Dosage: 0.625MG/1.25MG, 1 X DAY
  6. FAMOTIDINE [Concomitant]
     Route: 048
  7. FAMOTIDINE [Concomitant]
     Route: 048
  8. DILAUDID [Concomitant]
     Indication: SPINAL PAIN
     Route: 048
  9. DILAUDID [Concomitant]
     Indication: BONE PAIN
     Route: 048
  10. DILAUDID [Concomitant]
     Indication: FIBROMYALGIA
     Route: 048
  11. LYRICA [Concomitant]
     Route: 048
  12. CHEMOTHERAPY [Concomitant]
     Dosage: EVERY MONTH

REACTIONS (5)
  - Migraine [Unknown]
  - Abdominal pain [Unknown]
  - Abdominal distension [Unknown]
  - Dyspnoea [Unknown]
  - Drug dose omission [Unknown]
